FAERS Safety Report 13454556 (Version 1)
Quarter: 2017Q2

REPORT INFORMATION
  Report Type: Spontaneous
  Country: US (occurrence: US)
  Receive Date: 20170418
  Receipt Date: 20170418
  Transmission Date: 20170830
  Serious: No
  Sender: FDA-Public Use
  Company Number: US-ALLERGAN-1701824US

PATIENT
  Sex: Female
  Weight: 58.5 kg

DRUGS (1)
  1. LATISSE [Suspect]
     Active Substance: BIMATOPROST
     Indication: GROWTH OF EYELASHES
     Dosage: 2 GTT, QHS, 4X/WEEK
     Route: 061
     Dates: start: 2016

REACTIONS (6)
  - Eyelid oedema [Recovered/Resolved]
  - Hypoaesthesia eye [Recovered/Resolved]
  - Drug ineffective [Unknown]
  - Eye pruritus [Recovered/Resolved]
  - Ocular discomfort [Recovered/Resolved]
  - Erythema of eyelid [Recovered/Resolved]
